FAERS Safety Report 6637207-9 (Version None)
Quarter: 2010Q1

REPORT INFORMATION
  Report Type: 
  Country: None (occurrence: None)
  Receive Date: 20100316
  Receipt Date: 20100219
  Transmission Date: 20100710
  Serious: No
  Sender: FDA-Public Use
  Company Number: US-ABBOTT-10P-163-0628587-00

PATIENT
  Age: 52 Year
  Sex: Male
  Weight: 99.88 kg

DRUGS (2)
  1. TRILIPIX [Suspect]
     Indication: DYSLIPIDAEMIA
     Dosage: EVERY NIGHT
     Dates: start: 20091012, end: 20100105
  2. SIMVASTATIN [Concomitant]
     Indication: DYSLIPIDAEMIA
     Dosage: EVERY NIGHT

REACTIONS (2)
  - ALANINE AMINOTRANSFERASE INCREASED [None]
  - HYPERTENSION [None]
